FAERS Safety Report 6302322-6 (Version None)
Quarter: 2009Q3

REPORT INFORMATION
  Report Type: 
  Country: None (occurrence: None)
  Receive Date: 20090810
  Receipt Date: 20090729
  Transmission Date: 20100115
  Serious: Yes (Hospitalization)
  Sender: FDA-Public Use
  Company Number: FR-PFIZER INC-2009247281

PATIENT
  Age: 77 Year

DRUGS (10)
  1. SUTENT [Suspect]
     Indication: RENAL CANCER METASTATIC
     Dosage: 50 MG, 1X/DAY
     Route: 048
     Dates: start: 20090501, end: 20090602
  2. BRONCHODUAL [Concomitant]
  3. SPIRIVA [Concomitant]
  4. LASIX [Concomitant]
     Dosage: 500 MG, SCORED TABLET
  5. XATRAL [Concomitant]
  6. TARDYFERON [Concomitant]
  7. CACIT D3 [Concomitant]
  8. MOPRAL [Concomitant]
     Dosage: 20 MG, GASTRO-RESISTANT TABLET
  9. CORTANCYL [Concomitant]
     Dosage: 20 MG, TABLET
  10. DIFFU K [Concomitant]

REACTIONS (3)
  - EPISTAXIS [None]
  - LEUKOPENIA [None]
  - THROMBOCYTOPENIC PURPURA [None]
